FAERS Safety Report 7398524-0 (Version None)
Quarter: 2011Q2

REPORT INFORMATION
  Report Type: 
  Country: None (occurrence: None)
  Receive Date: 20110407
  Receipt Date: 20110331
  Transmission Date: 20111010
  Serious: No
  Sender: FDA-Public Use
  Company Number: US-BIOGENIDEC-2011BI001044

PATIENT
  Age: 53 Year
  Sex: Female

DRUGS (4)
  1. TYSABRI [Suspect]
     Indication: MULTIPLE SCLEROSIS
     Route: 042
     Dates: start: 20100915
  2. GABAPENTIN [Concomitant]
     Indication: FIBROMYALGIA
  3. REBIF [Concomitant]
  4. LORAZEPAM [Concomitant]
     Indication: FIBROMYALGIA

REACTIONS (13)
  - MYALGIA [None]
  - BALANCE DISORDER [None]
  - APHONIA [None]
  - HYPOTENSION [None]
  - WEIGHT INCREASED [None]
  - MUSCLE STRAIN [None]
  - BURNING SENSATION [None]
  - HEADACHE [None]
  - FATIGUE [None]
  - DYSPHONIA [None]
  - PAIN [None]
  - COUGH [None]
  - PAIN IN EXTREMITY [None]
